FAERS Safety Report 9606354 (Version 1)
Quarter: 2013Q4

REPORT INFORMATION
  Report Type: Spontaneous
  Country: US (occurrence: US)
  Receive Date: 20131008
  Receipt Date: 20131008
  Transmission Date: 20140711
  Serious: No
  Sender: FDA-Public Use
  Company Number: US-AMGEN-USASP2013052001

PATIENT
  Age: 62 Year
  Sex: Female

DRUGS (5)
  1. PROLIA [Suspect]
     Indication: OSTEOPOROSIS POSTMENOPAUSAL
     Dosage: UNK
     Route: 065
     Dates: start: 201201
  2. VITAMIN D                          /00107901/ [Concomitant]
  3. VITAMIN K                          /00032401/ [Concomitant]
  4. VITAMIN A                          /00056001/ [Concomitant]
  5. CALCIUM [Concomitant]

REACTIONS (6)
  - Myalgia [Unknown]
  - Back pain [Unknown]
  - Musculoskeletal stiffness [Unknown]
  - Feeling abnormal [Unknown]
  - Pain [Unknown]
  - Arthralgia [Unknown]
